FAERS Safety Report 19007071 (Version 1)
Quarter: 2021Q1

REPORT INFORMATION
  Report Type: Spontaneous
  Country: US (occurrence: US)
  Receive Date: 20210313
  Receipt Date: 20210313
  Transmission Date: 20210420
  Serious: Yes (Hospitalization, Disabling, Other)
  Sender: FDA-Public Use
  Company Number: None

PATIENT
  Age: 66 Year
  Sex: Male
  Weight: 106.2 kg

DRUGS (8)
  1. OXYGEN MACHINE [Concomitant]
  2. VIT?D [Concomitant]
  3. INSULIN [Concomitant]
     Active Substance: INSULIN NOS
  4. RANITIDINE. [Suspect]
     Active Substance: RANITIDINE
  5. STAIR LIFT [Concomitant]
  6. BI?PAP [Concomitant]
     Active Substance: DEVICE
  7. METFORMIN ER [Suspect]
     Active Substance: METFORMIN HYDROCHLORIDE
     Indication: GASTROOESOPHAGEAL REFLUX DISEASE
     Route: 048
  8. METFORMIN ER [Suspect]
     Active Substance: METFORMIN HYDROCHLORIDE
     Indication: DIABETES MELLITUS
     Route: 048

REACTIONS (7)
  - Neoplasm malignant [None]
  - Carcinogenicity [None]
  - Recalled product administered [None]
  - Product quality issue [None]
  - Haematochezia [None]
  - Illness [None]
  - Product formulation issue [None]

NARRATIVE: CASE EVENT DATE: 20200430
